FAERS Safety Report 8018880-X (Version None)
Quarter: 2012Q1

REPORT INFORMATION
  Report Type: 
  Country: None (occurrence: None)
  Receive Date: 20120103
  Receipt Date: 20111229
  Transmission Date: 20120608
  Serious: Yes (Hospitalization)
  Sender: FDA-Public Use
  Company Number: IT-PFIZER INC-2011315548

PATIENT
  Age: 50 Year
  Sex: Male

DRUGS (6)
  1. CYCLOPHOSPHAMIDE [Suspect]
     Indication: DIFFUSE LARGE B-CELL LYMPHOMA
     Dosage: 1100 MG, CYCLIC
     Route: 042
     Dates: start: 20111012, end: 20111114
  2. COLCHICINA ^LIRCA^ [Concomitant]
  3. VINCRISTINE [Suspect]
     Indication: DIFFUSE LARGE B-CELL LYMPHOMA
     Dosage: 1.5 MG, CYCLIC
     Route: 042
     Dates: start: 20111012, end: 20111114
  4. PREDNISONE TAB [Concomitant]
     Dosage: 100 MG, UNK
     Route: 048
     Dates: start: 20111114, end: 20111118
  5. DOXORUBICIN HCL [Suspect]
     Indication: DIFFUSE LARGE B-CELL LYMPHOMA
     Dosage: 75 MG, CYCLIC
     Route: 042
     Dates: start: 20111012, end: 20111114
  6. WARFARIN SODIUM [Concomitant]
     Dosage: UNK

REACTIONS (2)
  - HAEMOPTYSIS [None]
  - LUNG INFECTION [None]
